FAERS Safety Report 19620726 (Version 1)
Quarter: 2021Q3

REPORT INFORMATION
  Report Type: Spontaneous
  Country: PL (occurrence: PL)
  Receive Date: 20210728
  Receipt Date: 20210728
  Transmission Date: 20211014
  Serious: Yes (Life-Threatening, Other)
  Sender: FDA-Public Use
  Company Number: PL-VALIDUS PHARMACEUTICALS LLC-PL-VDP-2021-000221

PATIENT
  Age: 56 Year
  Sex: Female
  Weight: 65 kg

DRUGS (5)
  1. BIPERIDEN [Suspect]
     Active Substance: BIPERIDEN
     Indication: PRODUCT USED FOR UNKNOWN INDICATION
     Dosage: UP TO 30 TABLETS
     Route: 065
     Dates: start: 20200623
  2. CLONAZEPAM. [Suspect]
     Active Substance: CLONAZEPAM
     Indication: PRODUCT USED FOR UNKNOWN INDICATION
     Dosage: UP TO 60 TABLETS
     Route: 065
     Dates: start: 20200623
  3. FUROSEMIDE. [Suspect]
     Active Substance: FUROSEMIDE
     Indication: PRODUCT USED FOR UNKNOWN INDICATION
     Dosage: UP TO 30 TABLETS
     Route: 065
     Dates: start: 20200623
  4. BISOPROLOL FUMARATE. [Suspect]
     Active Substance: BISOPROLOL FUMARATE
     Indication: PRODUCT USED FOR UNKNOWN INDICATION
     Dosage: UP TO 30 TABLETS
     Route: 065
     Dates: start: 20200623
  5. HALOPERIDOL. [Suspect]
     Active Substance: HALOPERIDOL
     Indication: PRODUCT USED FOR UNKNOWN INDICATION
     Dosage: UP TO 20 TABLETS
     Route: 065
     Dates: start: 20200623

REACTIONS (4)
  - Suicide attempt [Recovering/Resolving]
  - Reflexes abnormal [Recovering/Resolving]
  - Loss of consciousness [Recovering/Resolving]
  - Intentional overdose [Unknown]

NARRATIVE: CASE EVENT DATE: 20200623
